FAERS Safety Report 8713736 (Version 2)
Quarter: 2012Q4

REPORT INFORMATION
  Report Type: 
  Country: FR (occurrence: FR)
  Receive Date: 20120808
  Receipt Date: 20121101
  Transmission Date: 20130627
  Serious: Yes (Death)
  Sender: FDA-Public Use
  Company Number: FR-NAPPMUNDI-GBR-2012-0011162

PATIENT
  Age: 89 Year
  Sex: Female

DRUGS (15)
  1. OXYNORM [Suspect]
     Indication: ABDOMINAL PAIN
     Dosage: UNK mg, UNK
     Route: 048
     Dates: start: 20120618, end: 20120629
  2. CYMBALTA [Suspect]
     Indication: ANXIETY
     Dosage: 60 mg, daily
     Route: 048
     Dates: start: 20120626, end: 20120629
  3. ROCEPHINE [Suspect]
     Indication: LUNG INFECTION
     Dosage: UNK
     Route: 065
     Dates: start: 20120618, end: 20120629
  4. LOVENOX [Suspect]
     Indication: PROPHYLAXIS
     Dosage: UNK
     Route: 065
     Dates: start: 20120618, end: 20120630
  5. SPECIAFOLDINE [Suspect]
     Indication: FOLATE DEFICIENCY
     Dosage: UNK
     Route: 048
     Dates: start: 20120619, end: 20120629
  6. TRAMADOL HYDROCHLORIDE [Concomitant]
  7. TRANSIPEG                          /00754501/ [Concomitant]
  8. KARDEGIC [Concomitant]
  9. INEXIUM /01479302/ [Concomitant]
  10. CALCIDOSE                          /00751519/ [Concomitant]
  11. PARACETAMOL [Concomitant]
  12. DIFFU K [Concomitant]
  13. GAVISCON                           /00237601/ [Concomitant]
  14. FUROSEMIDE [Concomitant]
  15. ALPRAZOLAM [Concomitant]

REACTIONS (3)
  - Hepatocellular injury [Fatal]
  - Ocular icterus [Fatal]
  - Pyrexia [Fatal]
